FAERS Safety Report 19443253 (Version 7)
Quarter: 2022Q3

REPORT INFORMATION
  Report Type: Report from Study
  Country: JP (occurrence: JP)
  Receive Date: 20210621
  Receipt Date: 20220720
  Transmission Date: 20221027
  Serious: Yes (Hospitalization, Other)
  Sender: FDA-Public Use
  Company Number: JP-ALNYLAM PHARMACEUTICALS, INC.-ALN-2020-002197

PATIENT

DRUGS (23)
  1. ONPATTRO [Suspect]
     Active Substance: PATISIRAN SODIUM
     Indication: Hereditary neuropathic amyloidosis
     Dosage: 20.4 MILLIGRAM
     Route: 041
     Dates: start: 20201030, end: 20201030
  2. ONPATTRO [Suspect]
     Active Substance: PATISIRAN SODIUM
     Dosage: 20.1 MILLIGRAM, Q3W
     Route: 041
     Dates: start: 20201119, end: 20210127
  3. ONPATTRO [Suspect]
     Active Substance: PATISIRAN SODIUM
     Dosage: 19.8 MILLIGRAM
     Route: 041
     Dates: start: 20210217, end: 20210217
  4. ONPATTRO [Suspect]
     Active Substance: PATISIRAN SODIUM
     Dosage: 20.1 MILLIGRAM
     Route: 041
     Dates: start: 20210310, end: 20210310
  5. ONPATTRO [Suspect]
     Active Substance: PATISIRAN SODIUM
     Dosage: 19.8 MILLIGRAM
     Route: 041
     Dates: start: 20210331, end: 20210421
  6. ONPATTRO [Suspect]
     Active Substance: PATISIRAN SODIUM
     Dosage: 19.5 MILLIGRAM
     Route: 041
     Dates: start: 20210512, end: 20210714
  7. ONPATTRO [Suspect]
     Active Substance: PATISIRAN SODIUM
     Dosage: 19.8 MILLIGRAM
     Route: 041
     Dates: start: 20210804, end: 20210825
  8. ONPATTRO [Suspect]
     Active Substance: PATISIRAN SODIUM
     Dosage: 19.5 MILLIGRAM
     Route: 041
     Dates: start: 20210917, end: 20210917
  9. ONPATTRO [Suspect]
     Active Substance: PATISIRAN SODIUM
     Dosage: 19.8 MILLIGRAM
     Route: 041
     Dates: start: 20211006, end: 20211006
  10. ONPATTRO [Suspect]
     Active Substance: PATISIRAN SODIUM
     Dosage: 19.5 MILLIGRAM
     Route: 041
     Dates: start: 20211027, end: 20211027
  11. DEXAMETHASONE SODIUM PHOSPHATE [Concomitant]
     Active Substance: DEXAMETHASONE SODIUM PHOSPHATE
     Indication: Prophylaxis
     Dosage: 9.9 MILLIGRAM, SINGLE
     Route: 042
     Dates: start: 20201030, end: 20211027
  12. POLARAMINE [Concomitant]
     Active Substance: DEXCHLORPHENIRAMINE MALEATE
     Indication: Prophylaxis
     Dosage: 5 MILLIGRAM, SINGLE
     Route: 042
     Dates: start: 20201030, end: 20211027
  13. FAMOTIDINE [Concomitant]
     Active Substance: FAMOTIDINE
     Indication: Prophylaxis
     Dosage: 20 MILLIGRAM, SINGLE
     Route: 065
     Dates: start: 20201030, end: 20211027
  14. CALONAL [Concomitant]
     Active Substance: ACETAMINOPHEN
     Indication: Prophylaxis
     Dosage: 400-500 MG, SINGLE
     Route: 048
     Dates: start: 20201030, end: 20211027
  15. AMLODIPINE [Concomitant]
     Active Substance: AMLODIPINE BESYLATE
     Indication: Hypertension
     Dosage: 5 MILLIGRAM, QD
     Route: 065
  16. METHYLCOBALAMIN [Concomitant]
     Active Substance: METHYLCOBALAMIN
     Indication: Hereditary neuropathic amyloidosis
     Dosage: 0.5 MILLIGRAM, BID
     Route: 065
  17. BEOVA [Concomitant]
     Indication: Hereditary neuropathic amyloidosis
     Dosage: 50 MILLIGRAM, QD
     Route: 065
  18. VESICARE [Concomitant]
     Active Substance: SOLIFENACIN SUCCINATE
     Indication: Hereditary neuropathic amyloidosis
     Dosage: 5 MILLIGRAM, QD
     Route: 065
  19. FML [Concomitant]
     Active Substance: FLUOROMETHOLONE
     Indication: Hereditary neuropathic amyloidosis
     Dosage: 1 DROP, TID
     Route: 047
     Dates: end: 20210104
  20. MOXIFLOXACIN HYDROCHLORIDE [Concomitant]
     Active Substance: MOXIFLOXACIN HYDROCHLORIDE
     Indication: Hereditary neuropathic amyloidosis
     Dosage: 1 DROP, TID
     Route: 047
     Dates: end: 20201207
  21. GATIFLOXACIN [Concomitant]
     Active Substance: GATIFLOXACIN
     Indication: Hereditary neuropathic amyloidosis
     Dosage: 1 DROP, TID
     Route: 047
     Dates: start: 20201208
  22. DEXAMETHASONE [Concomitant]
     Active Substance: DEXAMETHASONE
     Indication: Hereditary neuropathic amyloidosis
     Dosage: 1 DROP, QID
     Route: 065
     Dates: start: 20210105
  23. CINAL [Concomitant]
     Indication: Hereditary neuropathic amyloidosis
     Dosage: 1 DOSAGE FORM, BID
     Route: 048
     Dates: start: 20210128

REACTIONS (9)
  - Infusion related reaction [Recovered/Resolved]
  - Atrioventricular block first degree [Recovered/Resolved]
  - Bradycardia [Recovered/Resolved]
  - Ventricular extrasystoles [Recovered/Resolved]
  - Chest discomfort [Recovered/Resolved]
  - Fibrin D dimer increased [Recovering/Resolving]
  - Vitamin A deficiency [Not Recovered/Not Resolved]
  - Visual acuity reduced [Recovering/Resolving]
  - Hypoaesthesia [Not Recovered/Not Resolved]

NARRATIVE: CASE EVENT DATE: 20201119
